FAERS Safety Report 22093982 (Version 1)
Quarter: 2023Q1

REPORT INFORMATION
  Report Type: Spontaneous
  Country: US (occurrence: US)
  Receive Date: 20230314
  Receipt Date: 20230314
  Transmission Date: 20230418
  Serious: No
  Sender: FDA-Public Use
  Company Number: US-Dermavant-000294

PATIENT
  Age: 75 Year
  Sex: Male

DRUGS (8)
  1. TAPINAROF [Suspect]
     Active Substance: TAPINAROF
     Indication: Psoriasis
     Dosage: APPLIED TO AFFECTED AREAS (INSIDE OF ELBOWS, UNDER ARMPITS, BREASTS, UNDER GROIN, AND?BUTTOCK) ON...
     Route: 061
     Dates: start: 202209, end: 20221130
  2. Mometasone 0.1% ointment [Concomitant]
     Indication: Eczema
  3. LIPITOR [Concomitant]
     Active Substance: ATORVASTATIN CALCIUM
  4. TRICOR [Concomitant]
     Active Substance: FENOFIBRATE
  5. ALTACE [Concomitant]
     Active Substance: RAMIPRIL
  6. COREG [Concomitant]
     Active Substance: CARVEDILOL
  7. DIAZEPAM [Concomitant]
     Active Substance: DIAZEPAM
  8. WARFARIN [Concomitant]
     Active Substance: WARFARIN

REACTIONS (5)
  - Application site rash [Recovering/Resolving]
  - Application site erythema [Recovering/Resolving]
  - Psoriasis [Recovering/Resolving]
  - Application site pruritus [Recovering/Resolving]
  - Hypersensitivity [Recovering/Resolving]

NARRATIVE: CASE EVENT DATE: 20221001
